FAERS Safety Report 15028231 (Version 1)
Quarter: 2018Q2

REPORT INFORMATION
  Report Type: Spontaneous
  Country: US (occurrence: US)
  Receive Date: 20180526
  Receipt Date: 20180526
  Transmission Date: 20180711
  Serious: No
  Sender: FDA-Public Use
  Company Number: None

PATIENT
  Age: 35 Year
  Sex: Male

DRUGS (1)
  1. STELARA [Suspect]
     Active Substance: USTEKINUMAB
     Dates: start: 20170816, end: 20180525

REACTIONS (3)
  - Decreased appetite [None]
  - Muscle fatigue [None]
  - Drug dose omission [None]

NARRATIVE: CASE EVENT DATE: 20180525
